FAERS Safety Report 8815289 (Version 1)
Quarter: 2012Q4

REPORT INFORMATION
  Report Type: 
  Country: US (occurrence: US)
  Receive Date: 20120928
  Receipt Date: 20120928
  Transmission Date: 20130627
  Serious: Yes (Life-Threatening, Hospitalization)
  Sender: FDA-Public Use
  Company Number: CHPA2012US020437

PATIENT
  Age: 75 Year
  Sex: Female

DRUGS (7)
  1. BENEFIBER W/ WHEAT DEXTRIN [Suspect]
     Indication: MEDICAL DIET
     Dosage: 2 TSP, TID
     Route: 048
     Dates: start: 1992
  2. MORPHINE [Suspect]
     Indication: PAIN
     Dosage: Unk, Unk
     Route: 065
     Dates: start: 20111225, end: 20111225
  3. CALCIUM [Concomitant]
     Dosage: 1 DF, QD
     Route: 048
     Dates: start: 1992
  4. VITAMIN B6 [Concomitant]
     Dosage: 1 DF, QD
     Route: 048
     Dates: start: 1992
  5. SINEX [Concomitant]
     Indication: BLADDER DISORDER
     Dosage: 1 DF, QD
     Route: 048
     Dates: start: 2008
  6. VERAPAMIL [Concomitant]
     Indication: HYPERTENSION
     Dosage: 2 DF, QD
     Route: 048
  7. NORCO [Concomitant]
     Indication: PAIN
     Dosage: 5 DF, QD
     Route: 048
     Dates: start: 20080914

REACTIONS (3)
  - Cardio-respiratory arrest [Recovered/Resolved]
  - Haemorrhage [None]
  - Pain [None]
